FAERS Safety Report 13060014 (Version 2)
Quarter: 2017Q1

REPORT INFORMATION
  Report Type: Report from Study
  Country: CA (occurrence: CA)
  Receive Date: 20161223
  Receipt Date: 20170308
  Transmission Date: 20170428
  Serious: Yes (Other)
  Sender: FDA-Public Use
  Company Number: CA-JNJFOC-20160912491

PATIENT
  Age: 37 Year
  Sex: Female
  Weight: 73.8 kg

DRUGS (8)
  1. REMICADE [Suspect]
     Active Substance: INFLIXIMAB
     Indication: CROHN^S DISEASE
     Route: 042
     Dates: start: 20131003
  2. WELLBUTRIN [Concomitant]
     Active Substance: BUPROPION HYDROCHLORIDE
     Route: 065
  3. RANITIDINE. [Concomitant]
     Active Substance: RANITIDINE
     Route: 065
  4. LOTEPREDNOL ETABONATE [Concomitant]
     Active Substance: LOTEPREDNOL ETABONATE
     Route: 065
  5. REMICADE [Suspect]
     Active Substance: INFLIXIMAB
     Indication: CROHN^S DISEASE
     Route: 042
     Dates: start: 20161216
  6. REMICADE [Suspect]
     Active Substance: INFLIXIMAB
     Indication: CROHN^S DISEASE
     Route: 042
     Dates: start: 20160909
  7. REMICADE [Suspect]
     Active Substance: INFLIXIMAB
     Indication: CROHN^S DISEASE
     Route: 042
     Dates: start: 20101021
  8. REMICADE [Suspect]
     Active Substance: INFLIXIMAB
     Indication: CROHN^S DISEASE
     Route: 042
     Dates: start: 20161028

REACTIONS (8)
  - Abdominal pain [Not Recovered/Not Resolved]
  - Frequent bowel movements [Not Recovered/Not Resolved]
  - Therapeutic response decreased [Unknown]
  - Intestinal stenosis [Unknown]
  - Off label use [Unknown]
  - Eye infection [Recovered/Resolved]
  - Influenza [Unknown]
  - Product use issue [Unknown]

NARRATIVE: CASE EVENT DATE: 20131003
